FAERS Safety Report 26131285 (Version 1)
Quarter: 2025Q4

REPORT INFORMATION
  Report Type: Spontaneous
  Country: EU (occurrence: EU)
  Receive Date: 20251208
  Receipt Date: 20251208
  Transmission Date: 20260118
  Serious: Yes (Death, Hospitalization)
  Sender: PFIZER
  Company Number: EU-PFIZER INC-PV202500142803

PATIENT
  Age: 12 Year
  Sex: Female

DRUGS (1)
  1. GENOTROPIN [Suspect]
     Active Substance: SOMATROPIN
     Indication: Growth hormone deficiency
     Dosage: UNK
     Route: 058
     Dates: start: 202312

REACTIONS (2)
  - Cardiac arrest [Fatal]
  - Epilepsy [Fatal]
